FAERS Safety Report 8803128 (Version 1)
Quarter: 2012Q4

REPORT INFORMATION
  Report Type: Report from Study
  Country: JP (occurrence: JP)
  Receive Date: 20120924
  Receipt Date: 20120924
  Transmission Date: 20130627
  Serious: No
  Sender: FDA-Public Use
  Company Number: JP-JNJFOC-20120608807

PATIENT
  Sex: Male
  Weight: 62 kg

DRUGS (5)
  1. DUROTEP MT [Suspect]
     Indication: PAIN
     Route: 062
     Dates: start: 20110621, end: 20110920
  2. GOSHAJINKIGAN [Concomitant]
     Indication: PAIN
     Route: 048
  3. OPALMON [Concomitant]
     Indication: PAIN
     Route: 048
  4. ANPLAG [Concomitant]
     Indication: PAIN
     Route: 048
  5. MAGNESIUM OXIDE [Concomitant]
     Indication: PROPHYLAXIS
     Route: 048

REACTIONS (2)
  - Drug intolerance [Unknown]
  - Drug prescribing error [Unknown]
